FAERS Safety Report 25120815 (Version 1)
Quarter: 2025Q1

REPORT INFORMATION
  Report Type: Spontaneous
  Country: US (occurrence: US)
  Receive Date: 20250325
  Receipt Date: 20250325
  Transmission Date: 20250408
  Serious: No
  Sender: JOHNSON AND JOHNSON
  Company Number: US-JNJFOC-20250369982

PATIENT
  Sex: Female

DRUGS (1)
  1. SPRAVATO [Suspect]
     Active Substance: ESKETAMINE
     Indication: Major depression
     Route: 045

REACTIONS (6)
  - Feeling abnormal [Unknown]
  - Emotional disorder [Unknown]
  - Abnormal dreams [Unknown]
  - Crying [Unknown]
  - Retching [Unknown]
  - Hypertension [Unknown]
